FAERS Safety Report 8170864-7 (Version None)
Quarter: 2012Q1

REPORT INFORMATION
  Report Type: 
  Country: None (occurrence: None)
  Receive Date: 20120106
  Receipt Date: 20110315
  Transmission Date: 20120608
  Serious: Yes (Hospitalization, Other)
  Sender: FDA-Public Use
  Company Number: US-005958

PATIENT
  Age: 62 Year
  Sex: Male
  Weight: 106.8 kg

DRUGS (6)
  1. SYNTHROID [Concomitant]
  2. HUMULIN 70/30 (INSULIN HUMAN; INSULIN HUMAN INJECION, ISOPHANE) [Concomitant]
  3. SIMVASTATIN [Concomitant]
  4. MULTIHANCE [Suspect]
     Indication: CEREBROVASCULAR ACCIDENT
     Dosage: 20ML ONCE INTRAVENOUS (NOT OTHERWISE SPECIFIED)
     Route: 042
     Dates: start: 20110224, end: 20110224
  5. MULTIHANCE [Suspect]
     Indication: APHASIA
     Dosage: 20ML ONCE INTRAVENOUS (NOT OTHERWISE SPECIFIED)
     Route: 042
     Dates: start: 20110224, end: 20110224
  6. MULTIHANCE [Suspect]
     Indication: NUCLEAR MAGNETIC RESONANCE IMAGING BRAIN
     Dosage: 20ML ONCE INTRAVENOUS (NOT OTHERWISE SPECIFIED)
     Route: 042
     Dates: start: 20110224, end: 20110224

REACTIONS (2)
  - HEMIPLEGIA [None]
  - GRAND MAL CONVULSION [None]
